FAERS Safety Report 9913485 (Version 2)
Quarter: 2014Q1

REPORT INFORMATION
  Report Type: Spontaneous
  Country: BR (occurrence: BR)
  Receive Date: 20140220
  Receipt Date: 20140328
  Transmission Date: 20141002
  Serious: Yes (Life-Threatening)
  Sender: FDA-Public Use
  Company Number: BR-JNJFOC-20140211539

PATIENT
  Age: 36 Year
  Sex: Female
  Weight: 72 kg

DRUGS (10)
  1. REMICADE [Suspect]
     Indication: SPONDYLITIS
     Route: 042
  2. REMICADE [Suspect]
     Indication: SPONDYLITIS
     Route: 042
     Dates: start: 20140325
  3. REMICADE [Suspect]
     Indication: SPONDYLITIS
     Route: 042
     Dates: start: 20140218
  4. TOPAMAX [Suspect]
     Indication: ANXIETY
     Route: 065
  5. TOPAMAX [Suspect]
     Indication: ANXIETY
     Route: 065
     Dates: start: 20140218
  6. PANTOPRAZOLE [Concomitant]
     Indication: GASTRITIS
     Route: 065
  7. CYCLOBENZAPRINE [Concomitant]
     Indication: MYALGIA
     Route: 065
  8. ESCITALOPRAM OXALATE [Concomitant]
     Indication: DEPRESSION
     Route: 065
  9. DROSPIRENONE W/ETHINYLESTRADIOL [Concomitant]
     Indication: CONTRACEPTION
     Route: 065
  10. SULFASALAZINE [Concomitant]
     Indication: SPONDYLITIS
     Route: 065

REACTIONS (4)
  - Pain [Recovered/Resolved]
  - Dyspnoea [Recovered/Resolved]
  - Infusion related reaction [Recovered/Resolved]
  - Nausea [Recovered/Resolved]
